FAERS Safety Report 6319079-5 (Version None)
Quarter: 2009Q3

REPORT INFORMATION
  Report Type: 
  Country: None (occurrence: None)
  Receive Date: 20090821
  Receipt Date: 20080826
  Transmission Date: 20100115
  Serious: No
  Sender: FDA-Public Use
  Company Number: US-ABBOTT-08P-163-0467589-00

PATIENT
  Sex: Female
  Weight: 108.05 kg

DRUGS (8)
  1. NIASPAN [Suspect]
     Indication: BLOOD CHOLESTEROL INCREASED
     Dates: start: 20080625, end: 20080709
  2. PREVECHOL [Concomitant]
     Indication: BLOOD CHOLESTEROL
     Route: 048
     Dates: start: 20080401
  3. LANTUS [Concomitant]
     Indication: DIABETES MELLITUS
     Route: 058
     Dates: start: 20050101
  4. CARVEDILOL [Concomitant]
     Indication: CARDIAC DISORDER
     Route: 048
     Dates: start: 20080625
  5. CLOPIDOGREL [Concomitant]
     Indication: STENT PLACEMENT
     Route: 048
     Dates: start: 20070401
  6. GLIMEPIRIDE [Concomitant]
     Indication: DIABETES MELLITUS
     Route: 048
     Dates: start: 20040101
  7. M.V.I. [Concomitant]
     Indication: DRUG USE FOR UNKNOWN INDICATION
     Route: 048
  8. CALCIUM-SANDOZ [Concomitant]
     Indication: DRUG USE FOR UNKNOWN INDICATION
     Route: 048

REACTIONS (2)
  - BURNING SENSATION [None]
  - GENERALISED ERYTHEMA [None]
